FAERS Safety Report 13591295 (Version 1)
Quarter: 2017Q2

REPORT INFORMATION
  Report Type: Spontaneous
  Country: US (occurrence: US)
  Receive Date: 20170530
  Receipt Date: 20170530
  Transmission Date: 20170830
  Serious: Yes (Hospitalization)
  Sender: FDA-Public Use
  Company Number: None

PATIENT
  Age: 79 Year
  Sex: Female

DRUGS (1)
  1. IMATINIB MESYLATE 400MG NOVARTIS [Suspect]
     Active Substance: IMATINIB MESYLATE
     Indication: CHRONIC MYELOID LEUKAEMIA
     Route: 048
     Dates: start: 20170409

REACTIONS (3)
  - Drug dose omission [None]
  - Haemoglobin decreased [None]
  - Colitis ischaemic [None]

NARRATIVE: CASE EVENT DATE: 20170519
